FAERS Safety Report 7931493-0 (Version None)
Quarter: 2011Q4

REPORT INFORMATION
  Report Type: 
  Country: None (occurrence: None)
  Receive Date: 20111121
  Receipt Date: 20111121
  Transmission Date: 20120403
  Serious: Yes (Other)
  Sender: FDA-Public Use
  Company Number: None

PATIENT
  Sex: Male
  Weight: 867.72 kg

DRUGS (1)
  1. ACETAMINOPHEN AND HYDROCODONE BITARTRATE [Suspect]
     Indication: ARTHRALGIA
     Dosage: 1 TAB
     Route: 048
     Dates: start: 20111007, end: 20111118

REACTIONS (3)
  - THERAPEUTIC RESPONSE DECREASED [None]
  - PRODUCT SUBSTITUTION ISSUE [None]
  - INADEQUATE ANALGESIA [None]
